FAERS Safety Report 4363972-X (Version None)
Quarter: 2004Q2

REPORT INFORMATION
  Report Type: 
  Country: None (occurrence: None)
  Receive Date: 20040511
  Receipt Date: 20040427
  Transmission Date: 20050107
  Serious: Yes (Other)
  Sender: FDA-Public Use
  Company Number: 200410231BFR

PATIENT
  Age: 8 Year
  Sex: Male
  Weight: 24 kg

DRUGS (2)
  1. KOGENATE FS [Suspect]
     Indication: FACTOR VIII DEFICIENCY
     Dosage: SEE IMAGE
     Route: 042
  2. KOGENATE FS [Suspect]

REACTIONS (3)
  - HAEMATOMA [None]
  - MEDICATION ERROR [None]
  - PHARMACEUTICAL PRODUCT COMPLAINT [None]
